FAERS Safety Report 9863424 (Version 2)
Quarter: 2014Q1

REPORT INFORMATION
  Report Type: Spontaneous
  Country: IT (occurrence: IT)
  Receive Date: 20140203
  Receipt Date: 20140203
  Transmission Date: 20141002
  Serious: Yes (Hospitalization)
  Sender: FDA-Public Use
  Company Number: PHHY2013IT026074

PATIENT
  Sex: Female

DRUGS (3)
  1. LORAZEPAM [Suspect]
     Indication: INTENTIONAL SELF-INJURY
     Dosage: 6 DF, TOTAL DOSE
     Dates: start: 20130124, end: 20130124
  2. ALPRAZOLAM [Suspect]
     Indication: INTENTIONAL SELF-INJURY
     Dosage: 4 DF, (TOTAL)
     Dates: start: 20130124, end: 20130124
  3. ALCOHOL [Concomitant]

REACTIONS (3)
  - Drug abuse [Unknown]
  - Disorientation [Unknown]
  - Sopor [Unknown]
